FAERS Safety Report 12841001 (Version 1)
Quarter: 2016Q4

REPORT INFORMATION
  Report Type: Spontaneous
  Country: US (occurrence: US)
  Receive Date: 20161012
  Receipt Date: 20161012
  Transmission Date: 20170207
  Serious: Yes (Hospitalization, Disabling, Other)
  Sender: FDA-Public Use
  Company Number: US-009507513-1108USA03572

PATIENT
  Sex: Female
  Weight: 47.63 kg

DRUGS (6)
  1. FOSAMAX [Suspect]
     Active Substance: ALENDRONATE SODIUM
     Dosage: 10 MG, UNK
     Route: 048
     Dates: start: 19990212
  2. VYTORIN [Concomitant]
     Active Substance: EZETIMIBE\SIMVASTATIN
     Dates: start: 1990
  3. FOSAMAX [Suspect]
     Active Substance: ALENDRONATE SODIUM
     Indication: OSTEOPOROSIS
     Dosage: 70 MG, UNK
     Route: 048
     Dates: start: 1995, end: 2009
  4. FOSAMAX [Suspect]
     Active Substance: ALENDRONATE SODIUM
     Route: 048
     Dates: start: 2002, end: 2008
  5. CALCIUM (UNSPECIFIED) (+) VITAMIN D (UNSPECIFIED) [Concomitant]
     Active Substance: CALCIUM CARBONATE\VITAMIN D
     Route: 048
     Dates: start: 1999
  6. DILTIAZEM. [Concomitant]
     Active Substance: DILTIAZEM
     Dates: start: 1990

REACTIONS (32)
  - Hepatic cyst [Unknown]
  - Nausea [Unknown]
  - Hypertension [Unknown]
  - Adverse drug reaction [Unknown]
  - Weight decreased [Unknown]
  - Carotid artery stenosis [Unknown]
  - Spinal fracture [Recovered/Resolved]
  - Arthralgia [Unknown]
  - Thoracic vertebral fracture [Unknown]
  - Dental caries [Unknown]
  - Normochromic normocytic anaemia [Unknown]
  - Adverse drug reaction [Unknown]
  - Tremor [Unknown]
  - Scoliosis [Unknown]
  - Blood cholesterol increased [Unknown]
  - Osteopenia [Unknown]
  - Tooth disorder [Unknown]
  - Vitamin B12 deficiency [Unknown]
  - Hyperlipidaemia [Unknown]
  - Constipation [Unknown]
  - Back pain [Unknown]
  - Rib fracture [Unknown]
  - Hepatic cyst [Unknown]
  - Spinal fracture [Unknown]
  - Femur fracture [Unknown]
  - Essential tremor [Not Recovered/Not Resolved]
  - Atrial fibrillation [Unknown]
  - Gastrooesophageal reflux disease [Unknown]
  - Diverticulum [Unknown]
  - Cataract [Unknown]
  - Iron deficiency [Not Recovered/Not Resolved]
  - Balance disorder [Unknown]

NARRATIVE: CASE EVENT DATE: 2002
